FAERS Safety Report 4465383-5 (Version None)
Quarter: 2004Q4

REPORT INFORMATION
  Report Type: 
  Country: None (occurrence: None)
  Receive Date: 20041004
  Receipt Date: 20040810
  Transmission Date: 20050328
  Serious: Yes (Hospitalization, Disabling)
  Sender: FDA-Public Use
  Company Number: IE-ROCHE-377532

PATIENT
  Age: 43 Year
  Sex: Female
  Weight: 80 kg

DRUGS (4)
  1. PEGASYS [Suspect]
     Indication: HEPATITIS C
     Route: 058
     Dates: start: 20040420
  2. METHADONE HCL [Concomitant]
     Dosage: TAKEN DAILY.
     Route: 048
  3. ACETAMINOPHEN [Concomitant]
     Dosage: AS REQUIRED.
     Route: 048
  4. COPEGUS [Suspect]
     Indication: HEPATITIS C
     Route: 048
     Dates: start: 20040420

REACTIONS (2)
  - ARTHRALGIA [None]
  - SWELLING [None]
